FAERS Safety Report 4525014-2 (Version None)
Quarter: 2004Q4

REPORT INFORMATION
  Report Type: 
  Country: None (occurrence: None)
  Receive Date: 20041117
  Receipt Date: 20031007
  Transmission Date: 20050328
  Serious: Yes (Other)
  Sender: FDA-Public Use
  Company Number: C2003-2657.01

PATIENT
  Age: 53 Year
  Sex: Female

DRUGS (9)
  1. CLOZAPINE [Suspect]
     Indication: SCHIZOAFFECTIVE DISORDER
     Dosage: 100MG Q AM AND 200MG Q HS, ORAL
     Route: 048
     Dates: end: 20030930
  2. CLOZAPINE [Suspect]
     Indication: SCHIZOAFFECTIVE DISORDER
     Dosage: 100MG Q AM AND 200MG Q HS, ORAL
     Route: 048
     Dates: start: 20031001
  3. CALCIUM/VITAMIN D [Concomitant]
  4. DOCUSATE SODIUM [Concomitant]
  5. HYDROCHLOROTHIAZIDE [Concomitant]
  6. IMIPRAM TAB [Concomitant]
  7. IRON SUPPLEMENT [Concomitant]
  8. OLANZAPINE [Concomitant]
  9. SENNA [Concomitant]

REACTIONS (1)
  - LEUKOPENIA [None]
